FAERS Safety Report 7524397-9 (Version None)
Quarter: 2011Q2

REPORT INFORMATION
  Report Type: 
  Country: None (occurrence: None)
  Receive Date: 20110525
  Receipt Date: 20110512
  Transmission Date: 20111010
  Serious: Yes (Other)
  Sender: FDA-Public Use
  Company Number: 2011MA006044

PATIENT
  Age: 71 Year
  Sex: Female

DRUGS (5)
  1. LEVOTHYROXINE SODIUM [Concomitant]
  2. SODIUM CHLORIDE [Concomitant]
  3. AMLODIPINE [Concomitant]
  4. RAMIPRIL [Suspect]
     Indication: HYPERTENSION
     Dosage: 2.5 MG; ; PO
     Route: 048
     Dates: start: 20110413, end: 20110420
  5. ORLISTAT [Concomitant]

REACTIONS (3)
  - OROPHARYNGEAL BLISTERING [None]
  - LIP SWELLING [None]
  - EYE SWELLING [None]
